FAERS Safety Report 20069321 (Version 2)
Quarter: 2021Q4

REPORT INFORMATION
  Report Type: Spontaneous
  Country: US (occurrence: US)
  Receive Date: 20211115
  Receipt Date: 20211210
  Transmission Date: 20220304
  Serious: Yes (Other)
  Sender: FDA-Public Use
  Company Number: US-PFIZER INC-202101539705

PATIENT
  Age: 53 Year
  Sex: Female
  Weight: 79.365 kg

DRUGS (3)
  1. EFFEXOR XR [Suspect]
     Active Substance: VENLAFAXINE HYDROCHLORIDE
     Indication: Depression
     Dosage: 150 MG, DAILY
  2. LOSARTAN POTASSIUM [Concomitant]
     Active Substance: LOSARTAN POTASSIUM
     Dosage: UNK
     Dates: start: 202101
  3. HYDROCHLOROTHIAZIDE [Concomitant]
     Active Substance: HYDROCHLOROTHIAZIDE
     Dosage: UNK
     Dates: start: 202101

REACTIONS (5)
  - Shock [Recovered/Resolved]
  - Hallucination [Unknown]
  - Withdrawal syndrome [Recovered/Resolved]
  - Vomiting [Recovered/Resolved]
  - Abnormal dreams [Unknown]

NARRATIVE: CASE EVENT DATE: 20210101
